FAERS Safety Report 6071807-2 (Version None)
Quarter: 2009Q1

REPORT INFORMATION
  Report Type: 
  Country: None (occurrence: None)
  Receive Date: 20090210
  Receipt Date: 20090127
  Transmission Date: 20090719
  Serious: Yes (Hospitalization)
  Sender: FDA-Public Use
  Company Number: PHHY2009JP03336

PATIENT
  Age: 80 Year
  Sex: Male

DRUGS (1)
  1. DIOVAN [Suspect]
     Indication: HYPERTENSION
     Dosage: 40 MG, QD
     Route: 048
     Dates: end: 20090115

REACTIONS (3)
  - ALTERED STATE OF CONSCIOUSNESS [None]
  - DIABETIC COMA [None]
  - HYPOGLYCAEMIA [None]
